FAERS Safety Report 5887077-1 (Version None)
Quarter: 2008Q3

REPORT INFORMATION
  Report Type: 
  Country: None (occurrence: None)
  Receive Date: 20080917
  Receipt Date: 20080905
  Transmission Date: 20090109
  Serious: Yes (Other)
  Sender: FDA-Public Use
  Company Number: DE-PFIZER INC-2007069347

PATIENT
  Sex: Male
  Weight: 2.985 kg

DRUGS (4)
  1. LYRICA [Suspect]
     Indication: NEUROPATHY PERIPHERAL
     Dosage: DAILY DOSE:300MG
     Route: 064
     Dates: start: 20070101, end: 20070701
  2. LYRICA [Suspect]
     Indication: INTERVERTEBRAL DISC PROTRUSION
  3. DURAGESIC-100 [Suspect]
     Indication: PAIN
     Route: 064
     Dates: start: 20070401, end: 20070801
  4. CYMBALTA [Concomitant]
     Dates: end: 20070701

REACTIONS (2)
  - DRUG EXPOSURE DURING PREGNANCY [None]
  - DRUG WITHDRAWAL SYNDROME NEONATAL [None]
